FAERS Safety Report 9699840 (Version 2)
Quarter: 2014Q2

REPORT INFORMATION
  Report Type: Spontaneous
  Country: IT (occurrence: IT)
  Receive Date: 20131120
  Receipt Date: 20140402
  Transmission Date: 20141212
  Serious: Yes (Other)
  Sender: FDA-Public Use
  Company Number: IT-ROCHE-1305853

PATIENT
  Age: 60 Year
  Sex: Male
  Weight: 76 kg

DRUGS (2)
  1. XELODA [Suspect]
     Indication: PANCREATIC CARCINOMA
     Route: 048
     Dates: start: 20130820, end: 20131108
  2. GEMCITABINE [Concomitant]
     Route: 042
     Dates: start: 20130820, end: 20131105

REACTIONS (1)
  - Mucosal inflammation [Recovered/Resolved]
